FAERS Safety Report 6388902-0 (Version None)
Quarter: 2009Q4

REPORT INFORMATION
  Report Type: 
  Country: None (occurrence: None)
  Receive Date: 20091001
  Receipt Date: 20090929
  Transmission Date: 20100525
  Serious: Yes (Hospitalization)
  Sender: FDA-Public Use
  Company Number: SP02583

PATIENT
  Sex: Female

DRUGS (2)
  1. MOVIPREP [Suspect]
     Indication: BOWEL PREPARATION
     Dosage: ORAL
     Route: 048
     Dates: start: 20090512, end: 20090512
  2. THYRONAJOD [Concomitant]

REACTIONS (10)
  - BLISTER [None]
  - DYSPHAGIA [None]
  - ERYTHEMA [None]
  - EYELID OEDEMA [None]
  - NAUSEA [None]
  - PERIORBITAL OEDEMA [None]
  - PRURITUS [None]
  - RASH [None]
  - SALIVARY GLAND ENLARGEMENT [None]
  - VOMITING [None]
